FAERS Safety Report 8286942-8 (Version None)
Quarter: 2012Q2

REPORT INFORMATION
  Report Type: 
  Country: None (occurrence: None)
  Receive Date: 20120416
  Receipt Date: 20120402
  Transmission Date: 20120825
  Serious: Yes (Other)
  Sender: FDA-Public Use
  Company Number: NL-AMGEN-NLDSP2012003801

PATIENT
  Age: 55 Year
  Sex: Female

DRUGS (8)
  1. PANADOL                            /00020001/ [Concomitant]
     Dosage: UNK
  2. FORADIL [Concomitant]
     Dosage: UNK
     Route: 055
     Dates: start: 20120320
  3. FOLIC ACID [Concomitant]
     Dosage: 5 MG, WEEKLY
  4. CALCIUM CARBONATE [Concomitant]
     Dosage: UNK
     Route: 048
     Dates: start: 20120123
  5. ALENDRONIC ACID [Concomitant]
     Dosage: UNK
     Route: 048
     Dates: start: 20120123
  6. ENBREL [Suspect]
     Indication: RHEUMATOID ARTHRITIS
     Dosage: 50 MG, WEEKLY
     Dates: start: 20110721, end: 20120109
  7. ALVESCO [Concomitant]
     Dosage: 1 DF, 1X/DAY
     Route: 055
     Dates: start: 20120320
  8. PREDNISONE TAB [Concomitant]
     Dosage: UNK
     Route: 048
     Dates: start: 20120123

REACTIONS (6)
  - NASOPHARYNGITIS [None]
  - DIZZINESS [None]
  - RESPIRATORY TRACT INFECTION [None]
  - DYSPNOEA [None]
  - HEADACHE [None]
  - FATIGUE [None]
